FAERS Safety Report 4491238-6 (Version None)
Quarter: 2004Q4

REPORT INFORMATION
  Report Type: 
  Country: None (occurrence: None)
  Receive Date: 20041101
  Receipt Date: 20041101
  Transmission Date: 20050328
  Serious: No
  Sender: FDA-Public Use
  Company Number: None

PATIENT
  Age: 61 Year
  Sex: Female
  Weight: 69.8539 kg

DRUGS (1)
  1. INDERAL LA [Suspect]
     Dosage: # 30 1-DAY

REACTIONS (3)
  - ARTHRALGIA [None]
  - JOINT SWELLING [None]
  - PAIN [None]
